FAERS Safety Report 9395397 (Version 3)
Quarter: 2013Q3

REPORT INFORMATION
  Report Type: Spontaneous
  Country: US (occurrence: US)
  Receive Date: 20130711
  Receipt Date: 20130822
  Transmission Date: 20140515
  Serious: Yes (Hospitalization, Other)
  Sender: FDA-Public Use
  Company Number: US-UCBSA-090996

PATIENT
  Sex: Male
  Weight: 89.09 kg

DRUGS (9)
  1. CIMZIA [Suspect]
     Indication: CROHN^S DISEASE
     Dosage: 1 DOSE ON HOLD
     Route: 058
     Dates: start: 20110831
  2. CIMZIA [Suspect]
     Indication: CROHN^S DISEASE
     Route: 058
  3. OMEPRAZOLE [Concomitant]
     Indication: GASTROOESOPHAGEAL REFLUX DISEASE
     Route: 048
  4. SIMVASTATIN [Concomitant]
     Indication: HYPERLIPIDAEMIA
     Route: 048
  5. HYDROCHLOROTHIAZIDE [Concomitant]
     Indication: HYPERTENSION
     Route: 048
  6. DIAZEPAM [Concomitant]
     Dosage: DOSE: 5MG PRN
     Route: 048
  7. CLONIDINE [Concomitant]
     Indication: HYPERTENSION
     Route: 048
  8. ZOMIG [Concomitant]
     Indication: MIGRAINE
     Dosage: DOSE: 5MG PRN
  9. ALLOPURINOL [Concomitant]

REACTIONS (7)
  - Gastrointestinal haemorrhage [Recovering/Resolving]
  - Mallory-Weiss syndrome [Recovering/Resolving]
  - Cholecystitis acute [Recovering/Resolving]
  - Shock [Unknown]
  - Anaemia [Unknown]
  - Deep vein thrombosis [Unknown]
  - Asthenia [Not Recovered/Not Resolved]
